FAERS Safety Report 8927856 (Version 2)
Quarter: 2012Q4

REPORT INFORMATION
  Report Type: 
  Country: BE (occurrence: BE)
  Receive Date: 20121127
  Receipt Date: 20121206
  Transmission Date: 20130627
  Serious: Yes (Death)
  Sender: FDA-Public Use
  Company Number: BE-BRISTOL-MYERS SQUIBB COMPANY-17152349

PATIENT

DRUGS (1)
  1. YERVOY [Suspect]
     Dosage: 2nd inf

REACTIONS (1)
  - General physical health deterioration [Fatal]
